FAERS Safety Report 9999286 (Version 1)
Quarter: 2014Q1

REPORT INFORMATION
  Report Type: Spontaneous
  Country: US (occurrence: US)
  Receive Date: 20140312
  Receipt Date: 20140312
  Transmission Date: 20141002
  Serious: Yes (Hospitalization)
  Sender: FDA-Public Use
  Company Number: US-ROCHE-1359122

PATIENT
  Age: 41 Year
  Sex: Male

DRUGS (1)
  1. ACTIVASE [Suspect]
     Indication: BRAIN STEM STROKE
     Route: 065

REACTIONS (3)
  - Dyspnoea [Unknown]
  - Local swelling [Unknown]
  - Protrusion tongue [Unknown]
